FAERS Safety Report 5580560-8 (Version None)
Quarter: 2007Q4

REPORT INFORMATION
  Report Type: 
  Country: None (occurrence: None)
  Receive Date: 20071231
  Receipt Date: 20071231
  Transmission Date: 20080405
  Serious: Yes (Life-Threatening)
  Sender: FDA-Public Use
  Company Number: None

PATIENT
  Age: 36 Year
  Sex: Female

DRUGS (1)
  1. CEFTRIAXONE [Suspect]
     Indication: PANCYTOPENIA
     Dosage: 2G QD IV
     Route: 042
     Dates: start: 20070809, end: 20070810

REACTIONS (1)
  - PANCYTOPENIA [None]
